FAERS Safety Report 14701054 (Version 3)
Quarter: 2018Q2

REPORT INFORMATION
  Report Type: Report from Study
  Country: DE (occurrence: DE)
  Receive Date: 20180330
  Receipt Date: 20180412
  Transmission Date: 20180711
  Serious: Yes (Hospitalization)
  Sender: FDA-Public Use
  Company Number: DE-JNJFOC-20180112938

PATIENT
  Age: 68 Year
  Sex: Female
  Weight: 80 kg

DRUGS (14)
  1. OBINUTUZUMAB. [Suspect]
     Active Substance: OBINUTUZUMAB
     Indication: CHRONIC LYMPHOCYTIC LEUKAEMIA
     Route: 042
     Dates: start: 20170504, end: 20170919
  2. INFLANEFRAN [Concomitant]
     Active Substance: PREDNISOLONE ACETATE
     Route: 065
  3. PREDNISOLONE. [Concomitant]
     Active Substance: PREDNISOLONE
     Route: 065
  4. DICLOFENAC [Concomitant]
     Active Substance: DICLOFENAC
     Route: 065
  5. ALLOPURINOL. [Concomitant]
     Active Substance: ALLOPURINOL
     Route: 065
  6. LEVOTHYROXIN [Concomitant]
     Active Substance: LEVOTHYROXINE
     Route: 065
  7. IBRUTINIB [Suspect]
     Active Substance: IBRUTINIB
     Indication: CHRONIC LYMPHOCYTIC LEUKAEMIA
     Route: 048
     Dates: start: 20170504, end: 20180111
  8. VENETOCLAX. [Suspect]
     Active Substance: VENETOCLAX
     Indication: CHRONIC LYMPHOCYTIC LEUKAEMIA
     Route: 048
     Dates: start: 20170524, end: 20180111
  9. VOLTAREN [Concomitant]
     Active Substance: DICLOFENAC SODIUM
     Route: 065
  10. COTRIM FORTE [Concomitant]
     Active Substance: SULFAMETHOXAZOLE\TRIMETHOPRIM
     Route: 065
  11. L-THYROXIN [Concomitant]
     Active Substance: LEVOTHYROXINE SODIUM
     Route: 065
  12. PANTOPRAZOLE [Concomitant]
     Active Substance: PANTOPRAZOLE
     Route: 065
  13. FUROSEMIDE. [Concomitant]
     Active Substance: FUROSEMIDE
     Route: 065
  14. ACYCLOVIR. [Concomitant]
     Active Substance: ACYCLOVIR
     Dosage: 1-1-1
     Route: 065

REACTIONS (1)
  - Tubulointerstitial nephritis [Recovered/Resolved]

NARRATIVE: CASE EVENT DATE: 20180111
